APPROVED DRUG PRODUCT: FLUDEOXYGLUCOSE F18
Active Ingredient: FLUDEOXYGLUCOSE F-18
Strength: 20-400mCi/ML
Dosage Form/Route: INJECTABLE;INTRAVENOUS
Application: N021870 | Product #002 | TE Code: AP
Applicant: FEINSTEIN INSTITUTE MEDICAL RESEARCH
Approved: Nov 21, 2008 | RLD: Yes | RS: Yes | Type: RX